FAERS Safety Report 4875353-0 (Version None)
Quarter: 2006Q1

REPORT INFORMATION
  Report Type: 
  Country: None (occurrence: None)
  Receive Date: 20060109
  Receipt Date: 20051005
  Transmission Date: 20060701
  Serious: Yes (Hospitalization, Other)
  Sender: FDA-Public Use
  Company Number: US-MERCK-0510USA04175

PATIENT
  Age: 61 Year
  Sex: Male
  Weight: 125 kg

DRUGS (8)
  1. VIOXX [Suspect]
     Indication: ARTHRALGIA
     Route: 048
     Dates: start: 19991210, end: 20010703
  2. OXYCONTIN [Concomitant]
     Route: 065
  3. PREVACID [Concomitant]
     Route: 065
  4. WELLBUTRIN [Concomitant]
     Route: 065
  5. PREDNISONE [Concomitant]
     Route: 065
  6. LIPITOR [Concomitant]
     Route: 065
  7. LORAZEPAM [Concomitant]
     Route: 065
  8. AVAPRO [Concomitant]
     Route: 065

REACTIONS (6)
  - BACK DISORDER [None]
  - CARDIOVASCULAR DISORDER [None]
  - DERMATOSIS [None]
  - EMOTIONAL DISTRESS [None]
  - MYOCARDIAL INFARCTION [None]
  - NEPHROLITHIASIS [None]
